FAERS Safety Report 4680019-6 (Version None)
Quarter: 2005Q2

REPORT INFORMATION
  Report Type: 
  Country: None (occurrence: None)
  Receive Date: 20050602
  Receipt Date: 20041203
  Transmission Date: 20051028
  Serious: Yes (Other)
  Sender: FDA-Public Use
  Company Number: GB-GLAXOSMITHKLINE-B0359542A

PATIENT
  Sex: Male

DRUGS (3)
  1. PAROXETINE HCL [Suspect]
     Indication: DEPRESSION
     Route: 065
     Dates: start: 20010601, end: 20020901
  2. OLANZAPINE [Concomitant]
     Route: 065
  3. CITALOPRAM [Concomitant]
     Route: 065

REACTIONS (7)
  - AGGRESSION [None]
  - HALLUCINATION, AUDITORY [None]
  - OVERDOSE [None]
  - PSYCHOTIC DISORDER [None]
  - SELF MUTILATION [None]
  - SLEEP DISORDER [None]
  - SUICIDAL IDEATION [None]
